FAERS Safety Report 8548083-1 (Version None)
Quarter: 2012Q3

REPORT INFORMATION
  Report Type: 
  Country: None (occurrence: None)
  Receive Date: 20120730
  Receipt Date: 20120718
  Transmission Date: 20120928
  Serious: No
  Sender: FDA-Public Use
  Company Number: US-009507513-1207USA006887

PATIENT

DRUGS (3)
  1. ZOCOR [Suspect]
     Dosage: UNK
     Route: 048
  2. ASPIRIN [Concomitant]
  3. PRILOSEC OTC [Concomitant]

REACTIONS (5)
  - RASH [None]
  - RIB FRACTURE [None]
  - SKELETAL INJURY [None]
  - EYE PRURITUS [None]
  - FALL [None]
